FAERS Safety Report 7741475-X (Version None)
Quarter: 2011Q3

REPORT INFORMATION
  Report Type: 
  Country: None (occurrence: None)
  Receive Date: 20110909
  Receipt Date: 20110829
  Transmission Date: 20111222
  Serious: Yes (Death, Hospitalization)
  Sender: FDA-Public Use
  Company Number: US-ASTRAZENECA-2011SE53445

PATIENT
  Age: 70 Year
  Sex: Female

DRUGS (5)
  1. MICAFUNGIN [Concomitant]
     Indication: PRODUCT USED FOR UNKNOWN INDICATION
     Route: 065
     Dates: start: 20110317, end: 20110327
  2. CUBICIN [Suspect]
     Indication: ABDOMINAL SEPSIS
     Route: 042
     Dates: start: 20110703
  3. MEROPENEM [Suspect]
     Indication: ABDOMINAL SEPSIS
     Route: 042
     Dates: start: 20110706
  4. AMIKACIN [Suspect]
     Indication: ABDOMINAL SEPSIS
     Route: 042
     Dates: start: 20110706
  5. TYGACIL [Concomitant]
     Indication: PRODUCT USED FOR UNKNOWN INDICATION
     Route: 065
     Dates: start: 20110317, end: 20110327

REACTIONS (1)
  - THROMBOCYTOPENIA [None]
